FAERS Safety Report 11327157 (Version 2)
Quarter: 2015Q3

REPORT INFORMATION
  Report Type: Spontaneous
  Country: IN (occurrence: IN)
  Receive Date: 20150731
  Receipt Date: 20150827
  Transmission Date: 20151125
  Serious: Yes (Death, Other)
  Sender: FDA-Public Use
  Company Number: IN-PFIZER INC-2015246200

PATIENT
  Age: 73 Year
  Sex: Male

DRUGS (1)
  1. INLYTA [Suspect]
     Active Substance: AXITINIB
     Indication: METASTATIC RENAL CELL CARCINOMA
     Dosage: 5 MG, 1X/DAY
     Route: 048
     Dates: start: 20150402

REACTIONS (9)
  - Haematemesis [Unknown]
  - Disease progression [Unknown]
  - Cardiac failure [Fatal]
  - Hypophagia [Unknown]
  - Restlessness [Unknown]
  - Metastatic renal cell carcinoma [Unknown]
  - Platelet count decreased [Unknown]
  - Pain [Unknown]
  - Palpitations [Unknown]

NARRATIVE: CASE EVENT DATE: 20150421
